FAERS Safety Report 16291009 (Version 2)
Quarter: 2019Q4

REPORT INFORMATION
  Report Type: Spontaneous
  Country: US (occurrence: US)
  Receive Date: 20190509
  Receipt Date: 20191226
  Transmission Date: 20200122
  Serious: Yes (Other)
  Sender: FDA-Public Use
  Company Number: US-PFIZER INC-2019192234

PATIENT
  Age: 53 Year
  Sex: Male
  Weight: 68 kg

DRUGS (1)
  1. LYRICA [Suspect]
     Active Substance: PREGABALIN
     Indication: NEUROPATHY PERIPHERAL
     Dosage: 450 MG, 1X/DAY, (3 CAP(S) ORAL NIGHTLY (BEDTIME))
     Route: 048
     Dates: start: 2007

REACTIONS (1)
  - Drug dependence [Unknown]
